FAERS Safety Report 8036718-1 (Version None)
Quarter: 2012Q1

REPORT INFORMATION
  Report Type: 
  Country: None (occurrence: None)
  Receive Date: 20120109
  Receipt Date: 20111228
  Transmission Date: 20120608
  Serious: Yes (Hospitalization, Other)
  Sender: FDA-Public Use
  Company Number: FK201103123

PATIENT
  Age: 26 Year
  Sex: Female

DRUGS (1)
  1. HALOPERIDOL [Suspect]
     Indication: AGITATION
     Dosage: INTRAVENOUS (NOT OTHERWISE SPECIFIED)
     Route: 042

REACTIONS (8)
  - COMA [None]
  - DYSTONIA [None]
  - HAEMODIALYSIS [None]
  - HYPERAMMONAEMIA [None]
  - HYPOPNOEA [None]
  - UNRESPONSIVE TO STIMULI [None]
  - MATERNAL EXPOSURE DURING PREGNANCY [None]
  - COMA SCALE ABNORMAL [None]
